FAERS Safety Report 20379845 (Version 1)
Quarter: 2022Q1

REPORT INFORMATION
  Report Type: Spontaneous
  Country: US (occurrence: None)
  Receive Date: 20220126
  Receipt Date: 20220126
  Transmission Date: 20220423
  Serious: Yes (unspecified)
  Sender: FDA-Public Use
  Company Number: None

PATIENT
  Age: 61 Year
  Sex: Female
  Weight: 77.11 kg

DRUGS (2)
  1. REGEN-COV [Suspect]
     Active Substance: CASIRIVIMAB\IMDEVIMAB
     Indication: COVID-19
     Dosage: FREQUENCY : DAILY;?
     Route: 041
     Dates: start: 20211210, end: 20211210
  2. 0.9 Saline 50ML [Concomitant]
     Dates: start: 20211210, end: 20211210

REACTIONS (6)
  - Back pain [None]
  - Nausea [None]
  - Therapy cessation [None]
  - Infusion related reaction [None]
  - Hypotension [None]
  - Heart rate decreased [None]

NARRATIVE: CASE EVENT DATE: 20211210
